FAERS Safety Report 19315582 (Version 1)
Quarter: 2021Q2

REPORT INFORMATION
  Report Type: Spontaneous
  Country: US (occurrence: US)
  Receive Date: 20210527
  Receipt Date: 20210527
  Transmission Date: 20210717
  Serious: No
  Sender: FDA-Public Use
  Company Number: US-PROGENICS PHARMACEUTICALS/LANTHEUS HOLDINGS-LMI-2020-00690

PATIENT

DRUGS (2)
  1. AZEDRA [Suspect]
     Active Substance: IOBENGUANE I-131
     Indication: PRODUCT USED FOR UNKNOWN INDICATION
     Dosage: DOSIMETRIC DOSE
     Dates: start: 20200504
  2. AZEDRA [Suspect]
     Active Substance: IOBENGUANE I-131
     Dosage: THERAPEUTIC DOSE
     Route: 065
     Dates: start: 20200609

REACTIONS (1)
  - Disease progression [Unknown]
